FAERS Safety Report 13126477 (Version 4)
Quarter: 2017Q2

REPORT INFORMATION
  Report Type: Spontaneous
  Country: US (occurrence: US)
  Receive Date: 20170118
  Receipt Date: 20170412
  Transmission Date: 20170830
  Serious: Yes (Other)
  Sender: FDA-Public Use
  Company Number: US-PFIZER INC-2017011324

PATIENT
  Age: 52 Year
  Sex: Female
  Weight: 68 kg

DRUGS (7)
  1. ROBITUSSIN COUGH AND CHEST CONGESTION SUGAR FREE DM [Suspect]
     Active Substance: DEXTROMETHORPHAN HYDROBROMIDE\GUAIFENESIN
     Indication: COUGH
     Dosage: 10 ML, EVERY 6 HOURS
     Route: 048
     Dates: start: 20170108, end: 20170109
  2. MUCINEX FAST MAX SEVERE CONGESTION + COLD [Concomitant]
     Indication: BRONCHITIS
     Dosage: 2 DF, EVERY 4 HRS
     Dates: start: 20170104, end: 20170105
  3. CEFDINIR. [Concomitant]
     Active Substance: CEFDINIR
     Indication: BRONCHITIS
     Dosage: 300 MG, 2X/DAY
     Dates: start: 20170106, end: 20170116
  4. BENZONATATE. [Concomitant]
     Active Substance: BENZONATATE
     Indication: COUGH
     Dosage: 200 MG, 2X/DAY
     Dates: start: 20170106, end: 20170116
  5. INSULIN [Concomitant]
     Active Substance: INSULIN NOS
     Indication: TYPE 1 DIABETES MELLITUS
     Dosage: 13.975 UNITS IN 24 HOURS
     Dates: start: 1996
  6. ROBITUSSIN COUGH AND CHEST CONGESTION SUGAR FREE DM [Suspect]
     Active Substance: DEXTROMETHORPHAN HYDROBROMIDE\GUAIFENESIN
     Indication: RESPIRATORY TRACT CONGESTION
  7. ROBITUSSIN COUGH AND CHEST CONGESTION SUGAR FREE DM [Suspect]
     Active Substance: DEXTROMETHORPHAN HYDROBROMIDE\GUAIFENESIN
     Indication: BRONCHITIS
     Dosage: 10 ML, EVERY 4 HRS
     Route: 048
     Dates: start: 20170104, end: 20170106

REACTIONS (1)
  - Blood glucose increased [Recovered/Resolved]

NARRATIVE: CASE EVENT DATE: 20170104
